FAERS Safety Report 16479943 (Version 1)
Quarter: 2019Q2

REPORT INFORMATION
  Report Type: Report from Study
  Country: US (occurrence: US)
  Receive Date: 20190626
  Receipt Date: 20190626
  Transmission Date: 20190711
  Serious: Yes (Hospitalization)
  Sender: FDA-Public Use
  Company Number: US-PFIZER INC-2019226559

PATIENT
  Age: 36 Year
  Sex: Male
  Weight: 151 kg

DRUGS (4)
  1. PREDNISONE. [Suspect]
     Active Substance: PREDNISONE
     Indication: ACUTE LYMPHOCYTIC LEUKAEMIA
     Dosage: 100 MG, DAYS 1-5 EVERY CYCLE
     Route: 048
     Dates: start: 20181212, end: 20190504
  2. INOTUZUMAB OZOGAMICIN [Suspect]
     Active Substance: INOTUZUMAB OZOGAMICIN
     Indication: ACUTE LYMPHOCYTIC LEUKAEMIA
     Dosage: AT 0.8 MG/M^2 DAY ONE, AND AT 0.5MG/M^2 DAYS 8 + 15 FOR EVERY CYCLE
     Route: 042
     Dates: start: 20181212, end: 20190514
  3. VINCRISTINE SULFATE. [Suspect]
     Active Substance: VINCRISTINE SULFATE
     Indication: ACUTE LYMPHOCYTIC LEUKAEMIA
     Dosage: 1.4 MG/M2, (MAX 2 MG) IV 1 EVERY CYCLE
     Route: 042
     Dates: start: 20181212, end: 20190430
  4. CYCLOPHOSPHAMIDE. [Suspect]
     Active Substance: CYCLOPHOSPHAMIDE
     Indication: ACUTE LYMPHOCYTIC LEUKAEMIA
     Dosage: 750 MG/M2, DAY 1 EVERY CYCLE
     Route: 042
     Dates: start: 20181212, end: 20190430

REACTIONS (3)
  - Pyelonephritis [Recovering/Resolving]
  - Embolism [Unknown]
  - Haematoma [Unknown]

NARRATIVE: CASE EVENT DATE: 20190521
